FAERS Safety Report 10494792 (Version 1)
Quarter: 2014Q4

REPORT INFORMATION
  Report Type: Spontaneous
  Country: US (occurrence: None)
  Receive Date: 20141001
  Receipt Date: 20141001
  Transmission Date: 20150528
  Serious: Yes (Hospitalization)
  Sender: FDA-Public Use
  Company Number: 2014SCAL000129

PATIENT
  Age: 65 Year
  Sex: Male

DRUGS (9)
  1. LITHIUM CARBONATE. [Suspect]
     Active Substance: LITHIUM CARBONATE
     Indication: BIPOLAR DISORDER
  2. SIMVASTATIN. [Concomitant]
     Active Substance: SIMVASTATIN
  3. GABAPENTIN. [Concomitant]
     Active Substance: GABAPENTIN
  4. SILDENAFIL. [Concomitant]
     Active Substance: SILDENAFIL
  5. METOPROLOL [Concomitant]
     Active Substance: METOPROLOL
  6. WARFARIN (WARFARIN) [Concomitant]
     Active Substance: WARFARIN
  7. LISINOPRIL. [Concomitant]
     Active Substance: LISINOPRIL
  8. SPIRONOLACTON (SPIRONOLACTONE) [Concomitant]
  9. ASPIRIN (ACETYLSALICYLIC ACID) [Concomitant]
     Active Substance: ASPIRIN

REACTIONS (13)
  - Tremor [None]
  - Dysgraphia [None]
  - Polydipsia [None]
  - Head injury [None]
  - Sinus bradycardia [None]
  - Antipsychotic drug level above therapeutic [None]
  - Confusional state [None]
  - Fall [None]
  - Polyuria [None]
  - Aphasia [None]
  - Toxicity to various agents [None]
  - Memory impairment [None]
  - International normalised ratio decreased [None]
